FAERS Safety Report 9821427 (Version 1)
Quarter: 2014Q1

REPORT INFORMATION
  Report Type: Spontaneous
  Country: US (occurrence: None)
  Receive Date: 20140115
  Receipt Date: 20140115
  Transmission Date: 20141002
  Serious: Yes (Other)
  Sender: FDA-Public Use
  Company Number: None

PATIENT
  Age: 55 Year
  Sex: Male

DRUGS (6)
  1. BRILINTA [Suspect]
     Route: 048
     Dates: start: 20131221
  2. ASA [Concomitant]
  3. ALLOPURINOL [Concomitant]
  4. CRESTOR [Concomitant]
  5. LOVAZA [Concomitant]
  6. METOPROLOL [Concomitant]

REACTIONS (2)
  - Local swelling [None]
  - Local swelling [None]
